FAERS Safety Report 9005680 (Version 1)
Quarter: 2013Q1

REPORT INFORMATION
  Report Type: Spontaneous
  Country: US (occurrence: US)
  Receive Date: 20130109
  Receipt Date: 20130109
  Transmission Date: 20140127
  Serious: No
  Sender: FDA-Public Use
  Company Number: US-ABBOTT-12P-163-0892322-00

PATIENT
  Sex: Male
  Weight: 63.56 kg

DRUGS (5)
  1. VICODIN [Suspect]
     Indication: PRODUCT USED FOR UNKNOWN INDICATION
  2. OXYCONTIN [Concomitant]
     Indication: SPINAL LAMINECTOMY
  3. OXYCONTIN [Concomitant]
     Indication: LUMBAR RADICULOPATHY
  4. OXYIR [Concomitant]
     Indication: SPINAL LAMINECTOMY
  5. OXYIR [Concomitant]
     Indication: LUMBAR RADICULOPATHY

REACTIONS (4)
  - Drug screen positive [Unknown]
  - Drug screen positive [Unknown]
  - Drug screen positive [Unknown]
  - Drug screen positive [Unknown]
